FAERS Safety Report 13757068 (Version 2)
Quarter: 2017Q3

REPORT INFORMATION
  Report Type: Spontaneous
  Country: US (occurrence: US)
  Receive Date: 20170715
  Receipt Date: 20170715
  Transmission Date: 20171127
  Serious: No
  Sender: FDA-Public Use
  Company Number: US-SUN PHARMACEUTICAL INDUSTRIES LTD-2016US-119543

PATIENT

DRUGS (2)
  1. DOXYCYCLINE. [Suspect]
     Active Substance: DOXYCYCLINE
     Indication: PRODUCT USED FOR UNKNOWN INDICATION
     Dosage: 100 MG, BID
     Route: 065
  2. TYPHOID VACCINE [Suspect]
     Active Substance: TYPHOID VACCINE
     Indication: IMMUNISATION
     Dosage: UNK
     Route: 048

REACTIONS (1)
  - Contraindicated product administered [Unknown]
